FAERS Safety Report 4783996-8 (Version None)
Quarter: 2005Q3

REPORT INFORMATION
  Report Type: 
  Country: None (occurrence: None)
  Receive Date: 20050927
  Receipt Date: 20050811
  Transmission Date: 20060218
  Serious: No
  Sender: FDA-Public Use
  Company Number: USA0508105309

PATIENT
  Age: 45 Year
  Sex: Female
  Weight: 84 kg

DRUGS (2)
  1. STRATTERA [Suspect]
     Indication: ATTENTION DEFICIT/HYPERACTIVITY DISORDER
     Dosage: 40 MG DAY
     Dates: start: 20050804
  2. ABILIFY [Concomitant]

REACTIONS (2)
  - AKATHISIA [None]
  - RESTLESS LEGS SYNDROME [None]
